FAERS Safety Report 8437048-6 (Version None)
Quarter: 2012Q2

REPORT INFORMATION
  Report Type: 
  Country: None (occurrence: None)
  Receive Date: 20120614
  Receipt Date: 20120611
  Transmission Date: 20120825
  Serious: Yes (Death, Other)
  Sender: FDA-Public Use
  Company Number: US-GENZYME-MOZO-1000609

PATIENT
  Sex: Male

DRUGS (5)
  1. MITOXANTRONE [Concomitant]
     Indication: ACUTE MYELOID LEUKAEMIA
     Dosage: 8 MG/M2, QD
     Route: 042
     Dates: start: 20111107, end: 20111111
  2. ETOPOSIDE [Concomitant]
     Indication: ACUTE MYELOID LEUKAEMIA
     Dosage: 100 MG/M2, QD
     Route: 042
     Dates: start: 20111107, end: 20111111
  3. GRANULOCYTE COLONY STIMULATING FACTOR [Concomitant]
     Indication: ACUTE MYELOID LEUKAEMIA
     Dosage: 10 MCG/KG, QD
     Route: 058
     Dates: start: 20111106, end: 20111111
  4. CYTARABINE [Concomitant]
     Indication: ACUTE MYELOID LEUKAEMIA
     Dosage: 1000 MG/M2, QD
     Route: 042
     Dates: start: 20111107, end: 20111111
  5. MOZOBIL [Suspect]
     Indication: ACUTE MYELOID LEUKAEMIA
     Dosage: 560 MCG/KG, QD
     Route: 042
     Dates: start: 20111104, end: 20111111

REACTIONS (5)
  - RESTLESSNESS [None]
  - NAUSEA [None]
  - PNEUMONIA [None]
  - PLATELET COUNT DECREASED [None]
  - NEUTROPHIL COUNT DECREASED [None]
